FAERS Safety Report 9640785 (Version 1)
Quarter: 2013Q4

REPORT INFORMATION
  Report Type: Report from Study
  Country: US (occurrence: US)
  Receive Date: 20131023
  Receipt Date: 20131023
  Transmission Date: 20140711
  Serious: No
  Sender: FDA-Public Use
  Company Number: US-ABBVIE-13P-163-1040823-00

PATIENT
  Age: 31 Year
  Sex: Female
  Weight: 57.66 kg

DRUGS (4)
  1. LUPRON DEPOT [Suspect]
     Indication: ENDOMETRIOSIS
     Dosage: EVERY MONTH
     Route: 030
     Dates: start: 20130116
  2. TRAMADOL [Concomitant]
     Indication: PAIN
  3. ZOFRAN [Concomitant]
     Indication: NAUSEA
  4. NORTREL [Concomitant]
     Indication: PRODUCT USED FOR UNKNOWN INDICATION
     Dosage: DOAGE UNKNOWN

REACTIONS (6)
  - Balance disorder [Not Recovered/Not Resolved]
  - Nausea [Not Recovered/Not Resolved]
  - Headache [Not Recovered/Not Resolved]
  - Insomnia [Not Recovered/Not Resolved]
  - Dizziness [Not Recovered/Not Resolved]
  - Endometriosis [Not Recovered/Not Resolved]
